FAERS Safety Report 18196510 (Version 1)
Quarter: 2020Q3

REPORT INFORMATION
  Report Type: Spontaneous
  Country: US (occurrence: US)
  Receive Date: 20200825
  Receipt Date: 20200825
  Transmission Date: 20201103
  Serious: No
  Sender: FDA-Public Use
  Company Number: US-GLENMARK PHARMACEUTICALS-2019GMK042961

PATIENT

DRUGS (1)
  1. ALCLOMETASONE DIPROPIONATE. [Suspect]
     Active Substance: ALCLOMETASONE DIPROPIONATE
     Indication: FUNGAL INFECTION
     Dosage: UNK, (ROUTE: INTRA?ORAL)
     Route: 048

REACTIONS (2)
  - Product dispensing issue [Unknown]
  - Product use in unapproved indication [Unknown]
